FAERS Safety Report 4431176-8 (Version None)
Quarter: 2004Q3

REPORT INFORMATION
  Report Type: 
  Country: None (occurrence: None)
  Receive Date: 20040824
  Receipt Date: 20040817
  Transmission Date: 20050211
  Serious: Yes (Other)
  Sender: FDA-Public Use
  Company Number: US-JNJFOC-20040805961

PATIENT
  Age: 69 Year
  Sex: Male
  Weight: 125.19 kg

DRUGS (5)
  1. TOLECTIN [Suspect]
     Route: 049
  2. TOLECTIN [Suspect]
     Route: 049
  3. ACTOS [Concomitant]
  4. AMARYL [Concomitant]
  5. GLUCOPHAGE [Concomitant]

REACTIONS (1)
  - CEREBROVASCULAR ACCIDENT [None]
